FAERS Safety Report 8212028-4 (Version None)
Quarter: 2012Q1

REPORT INFORMATION
  Report Type: 
  Country: None (occurrence: None)
  Receive Date: 20120315
  Receipt Date: 20120312
  Transmission Date: 20120608
  Serious: No
  Sender: FDA-Public Use
  Company Number: US-PFIZER INC-2012065333

PATIENT
  Sex: Female

DRUGS (5)
  1. ADVIL PM [Suspect]
     Indication: SLEEP DISORDER
     Dosage: UNK, AS NEEDED
     Route: 048
  2. ADVIL PM [Suspect]
     Dosage: 2 TABLETS
  3. NAPROXEN (ALEVE) [Suspect]
     Indication: BACK PAIN
     Dosage: 220 MG, AS NEEDED
     Route: 048
  4. NAPROXEN (ALEVE) [Suspect]
     Dosage: 440 MG, UNK
     Route: 048
  5. NORVASC [Concomitant]
     Indication: HYPERTENSION
     Dosage: 5 MG, 2X/DAY

REACTIONS (3)
  - MALAISE [None]
  - BURNING SENSATION [None]
  - GLOSSODYNIA [None]
